FAERS Safety Report 8242773-6 (Version None)
Quarter: 2012Q1

REPORT INFORMATION
  Report Type: 
  Country: None (occurrence: None)
  Receive Date: 20120329
  Receipt Date: 20120319
  Transmission Date: 20120608
  Serious: Yes (Hospitalization)
  Sender: FDA-Public Use
  Company Number: US-BAYER-2012-018321

PATIENT
  Age: 48 Year
  Sex: Female
  Weight: 63.492 kg

DRUGS (5)
  1. YAZ [Suspect]
     Indication: CONTRACEPTION
     Dosage: 1 DF, QD
     Route: 048
     Dates: start: 19990630, end: 20120209
  2. TOPAMAX [Concomitant]
  3. VITAMINE C [Concomitant]
  4. TRICOR [Concomitant]
     Dosage: UNK UNK, PRN
  5. CALCIUM CARBONATE [Concomitant]

REACTIONS (3)
  - PULMONARY EMBOLISM [None]
  - PAIN IN EXTREMITY [None]
  - DEEP VEIN THROMBOSIS [None]
